FAERS Safety Report 9641645 (Version 1)
Quarter: 2013Q4

REPORT INFORMATION
  Report Type: Spontaneous
  Country: NZ (occurrence: None)
  Receive Date: 20131021
  Receipt Date: 20131021
  Transmission Date: 20140711
  Serious: Yes (Life-Threatening, Hospitalization)
  Sender: FDA-Public Use
  Company Number: 2013P1020045

PATIENT
  Age: 51 Year
  Sex: Female

DRUGS (3)
  1. CITALOPRAM [Suspect]
     Route: 048
  2. QUETIAPINE [Suspect]
     Route: 048
  3. ALCOHOL [Suspect]

REACTIONS (17)
  - Suicide attempt [None]
  - Intentional overdose [None]
  - Unresponsive to stimuli [None]
  - Haemorrhage [None]
  - Fall [None]
  - Blood pH decreased [None]
  - PCO2 increased [None]
  - PO2 increased [None]
  - Blood bicarbonate decreased [None]
  - Blood lactic acid increased [None]
  - Electrocardiogram QRS complex prolonged [None]
  - Electrocardiogram QT prolonged [None]
  - Ventricular extrasystoles [None]
  - Pneumonia aspiration [None]
  - Hypothermia [None]
  - Hypoaesthesia [None]
  - Haemodynamic instability [None]
